FAERS Safety Report 7986911-9 (Version None)
Quarter: 2011Q4

REPORT INFORMATION
  Report Type: 
  Country: None (occurrence: None)
  Receive Date: 20111216
  Receipt Date: 20110906
  Transmission Date: 20120403
  Serious: No
  Sender: FDA-Public Use
  Company Number: US-BRISTOL-MYERS SQUIBB COMPANY-16033516

PATIENT
  Age: 44 Year
  Sex: Female
  Weight: 75 kg

DRUGS (3)
  1. FLUOXETINE [Concomitant]
  2. TRILEPTAL [Concomitant]
  3. ABILIFY [Suspect]
     Indication: BIPOLAR DISORDER
     Dates: start: 20070101, end: 20110831

REACTIONS (1)
  - TREATMENT NONCOMPLIANCE [None]
